FAERS Safety Report 10635648 (Version 1)
Quarter: 2014Q4

REPORT INFORMATION
  Report Type: Spontaneous
  Country: CA (occurrence: CA)
  Receive Date: 20141205
  Receipt Date: 20141205
  Transmission Date: 20150529
  Serious: Yes (Other)
  Sender: FDA-Public Use
  Company Number: CA-ROCHE-1501062

PATIENT
  Age: 53 Year
  Sex: Female

DRUGS (5)
  1. KADCYLA [Suspect]
     Active Substance: ADO-TRASTUZUMAB EMTANSINE
     Indication: PRODUCT USED FOR UNKNOWN INDICATION
     Route: 042
  2. TAXOTERE [Suspect]
     Active Substance: DOCETAXEL
     Indication: PRODUCT USED FOR UNKNOWN INDICATION
     Route: 042
  3. HERCEPTIN [Suspect]
     Active Substance: TRASTUZUMAB
     Indication: PRODUCT USED FOR UNKNOWN INDICATION
     Dosage: THERAPY DURATION:  9 YEARS
     Route: 042
  4. FASLODEX [Concomitant]
     Active Substance: FULVESTRANT
     Route: 030
  5. PAMIDRONATE DISODIUM OR ZOLEDRONATE [Concomitant]
     Route: 065

REACTIONS (5)
  - Cough [Unknown]
  - Vocal cord disorder [Unknown]
  - Pulmonary oedema [Unknown]
  - Malignant neoplasm progression [Unknown]
  - Dyspnoea [Unknown]
